FAERS Safety Report 8447118-4 (Version None)
Quarter: 2012Q2

REPORT INFORMATION
  Report Type: 
  Country: None (occurrence: None)
  Receive Date: 20120619
  Receipt Date: 20110805
  Transmission Date: 20120825
  Serious: No
  Sender: FDA-Public Use
  Company Number: US-PFIZER INC-K201100927

PATIENT
  Sex: Female

DRUGS (1)
  1. LEVOXYL [Suspect]
     Dosage: UNK
     Route: 048

REACTIONS (2)
  - EXPIRED DRUG ADMINISTERED [None]
  - NO ADVERSE EVENT [None]
